FAERS Safety Report 5851104-8 (Version None)
Quarter: 2008Q3

REPORT INFORMATION
  Report Type: 
  Country: None (occurrence: None)
  Receive Date: 20080820
  Receipt Date: 20080814
  Transmission Date: 20090109
  Serious: Yes (Hospitalization)
  Sender: FDA-Public Use
  Company Number: A0740355A

PATIENT
  Age: 73 Year
  Sex: Female
  Weight: 48.6 kg

DRUGS (3)
  1. TOPOTECAN HYDROCHLORIDE [Suspect]
     Dosage: 4MGM2 CYCLIC
     Route: 042
     Dates: start: 20080605
  2. CARBOPLATIN [Suspect]
     Dosage: 450MG CYCLIC
     Route: 042
     Dates: start: 20080605
  3. AMBIEN [Concomitant]
     Indication: SLEEP DISORDER
     Dates: start: 20080722, end: 20080722

REACTIONS (3)
  - ANAEMIA [None]
  - DEHYDRATION [None]
  - FATIGUE [None]
